FAERS Safety Report 18797365 (Version 2)
Quarter: 2021Q1

REPORT INFORMATION
  Report Type: Spontaneous
  Country: CN (occurrence: CN)
  Receive Date: 20210128
  Receipt Date: 20210212
  Transmission Date: 20210419
  Serious: Yes (Hospitalization, Other)
  Sender: FDA-Public Use
  Company Number: CN-LUPIN PHARMACEUTICALS INC.-2021-00674

PATIENT
  Age: 25 Year
  Sex: Female

DRUGS (6)
  1. LEVOTHYROXINE. [Concomitant]
     Active Substance: LEVOTHYROXINE
     Indication: HYPOTHYROIDISM
     Dosage: 25 MICROGRAM, QD
     Route: 065
     Dates: start: 20180903
  2. DICLOFENAC [Suspect]
     Active Substance: DICLOFENAC
     Indication: MYALGIA
     Dosage: UNK, FORMULATION: EMULGEL
     Route: 065
     Dates: start: 2018
  3. PREDNISONE. [Concomitant]
     Active Substance: PREDNISONE
     Indication: ADRENAL INSUFFICIENCY
     Dosage: 2.5 MILLIGRAM, QD
     Route: 065
     Dates: start: 20180907
  4. LEVOTHYROXINE. [Concomitant]
     Active Substance: LEVOTHYROXINE
     Dosage: 50 MICROGRAM, QD
     Route: 065
     Dates: start: 20180911
  5. FENOFIBRATE CAPSULES [Suspect]
     Active Substance: FENOFIBRATE
     Indication: HYPERLIPIDAEMIA
     Dosage: 0.2 GRAM, QD, MICRONISED CAPSULES
     Route: 065
     Dates: start: 20180903
  6. FENOFIBRATE TABLETS [Suspect]
     Active Substance: FENOFIBRATE
     Indication: HYPERLIPIDAEMIA
     Dosage: 0.1 GRAM, TID
     Route: 065
     Dates: start: 20180905

REACTIONS (2)
  - Rhabdomyolysis [Recovered/Resolved]
  - Drug ineffective [Unknown]

NARRATIVE: CASE EVENT DATE: 2018
